FAERS Safety Report 6669490-8 (Version None)
Quarter: 2010Q2

REPORT INFORMATION
  Report Type: 
  Country: None (occurrence: None)
  Receive Date: 20100406
  Receipt Date: 20100329
  Transmission Date: 20101027
  Serious: Yes (Hospitalization)
  Sender: FDA-Public Use
  Company Number: PHHY2010JP19900

PATIENT
  Age: 86 Year
  Sex: Female

DRUGS (1)
  1. RASILEZ [Suspect]
     Indication: HYPERTENSION
     Dosage: 150 MG DAILY
     Route: 048
     Dates: start: 20100309, end: 20100323

REACTIONS (2)
  - HYPONATRAEMIA [None]
  - LOSS OF CONSCIOUSNESS [None]
